FAERS Safety Report 8458123-6 (Version None)
Quarter: 2012Q2

REPORT INFORMATION
  Report Type: 
  Country: None (occurrence: None)
  Receive Date: 20120323
  Receipt Date: 20111101
  Transmission Date: 20120825
  Serious: Yes (Hospitalization, Other)
  Sender: FDA-Public Use
  Company Number: 163-21880-11102926

PATIENT
  Age: 77 Year
  Sex: Female

DRUGS (19)
  1. VICODIN [Concomitant]
  2. MOBIC [Concomitant]
  3. ATIVAN [Concomitant]
  4. REVLIMID [Suspect]
     Indication: MULTIPLE MYELOMA
     Dosage: 10 MG, DAILY X 21 DAYS, PO
     Route: 048
     Dates: start: 20111008, end: 20111029
  5. NORVASC [Concomitant]
  6. TOPROL-XL [Concomitant]
  7. HYDROCODONE BITARTRATE [Concomitant]
  8. VITAMIN B12 [Concomitant]
  9. AMLODIPINE [Concomitant]
  10. LASIX [Concomitant]
  11. DURAGESIC-100 [Concomitant]
  12. LOW DOSE ASA (ACETYLSALICYLIC ACID) [Concomitant]
  13. POTASSIUM CHLORIDE [Concomitant]
  14. ONDANSETRON [Concomitant]
  15. BLOOD TRANSFUSION (BLOOD CELLS, PACKED HUMAN) [Concomitant]
  16. SIMVASTATIN [Concomitant]
  17. PROTONIX [Concomitant]
  18. ZOFRAN [Concomitant]
  19. M.V.I. [Concomitant]

REACTIONS (4)
  - RASH ERYTHEMATOUS [None]
  - OROPHARYNGEAL BLISTERING [None]
  - FULL BLOOD COUNT DECREASED [None]
  - ORAL MUCOSAL BLISTERING [None]
